FAERS Safety Report 9707152 (Version 2)
Quarter: 2014Q1

REPORT INFORMATION
  Report Type: Spontaneous
  Country: US (occurrence: US)
  Receive Date: 20131125
  Receipt Date: 20140106
  Transmission Date: 20141002
  Serious: No
  Sender: FDA-Public Use
  Company Number: US-009507513-1311USA001324

PATIENT
  Age: 31 Year
  Sex: Male

DRUGS (2)
  1. PEGINTRON [Suspect]
     Indication: HEPATITIS C
     Dosage: REDIPEN
     Dates: start: 20131025
  2. REBETOL [Suspect]
     Indication: HEPATITIS C
     Dosage: UNK
     Route: 048
     Dates: start: 20131025

REACTIONS (16)
  - Balance disorder [Unknown]
  - Laceration [Unknown]
  - Local swelling [Unknown]
  - Haemorrhage [Unknown]
  - Skin discolouration [Unknown]
  - Pain [Unknown]
  - Influenza like illness [Unknown]
  - Localised infection [Unknown]
  - Irritability [Unknown]
  - Chills [Unknown]
  - Headache [Unknown]
  - Headache [Unknown]
  - Myalgia [Unknown]
  - Oedema peripheral [Unknown]
  - Skin disorder [Unknown]
  - Bacterial infection [Unknown]
